FAERS Safety Report 15868905 (Version 1)
Quarter: 2019Q1

REPORT INFORMATION
  Report Type: Spontaneous
  Country: US (occurrence: US)
  Receive Date: 20190125
  Receipt Date: 20190125
  Transmission Date: 20190417
  Serious: Yes (Hospitalization, Other)
  Sender: FDA-Public Use
  Company Number: US-GLAXOSMITHKLINE-US2019011833

PATIENT
  Age: 79 Year
  Sex: Male

DRUGS (1)
  1. BREO ELLIPTA [Suspect]
     Active Substance: FLUTICASONE FUROATE\VILANTEROL TRIFENATATE
     Indication: ASTHMA
     Dosage: 1 PUFF(S), QD
     Route: 055
     Dates: start: 201805

REACTIONS (8)
  - Sinusitis [Unknown]
  - Myocardial infarction [Unknown]
  - Cardiac disorder [Unknown]
  - Arteriospasm coronary [Unknown]
  - Atrial fibrillation [Unknown]
  - Chest pain [Unknown]
  - Inflammatory marker increased [Unknown]
  - Pain [Unknown]

NARRATIVE: CASE EVENT DATE: 20190117
